FAERS Safety Report 10442167 (Version 1)
Quarter: 2014Q3

REPORT INFORMATION
  Report Type: Report from Study
  Country: US (occurrence: US)
  Receive Date: 20140909
  Receipt Date: 20140909
  Transmission Date: 20150326
  Serious: Yes (Hospitalization)
  Sender: FDA-Public Use
  Company Number: US-BRISTOL-MYERS SQUIBB COMPANY-21360599

PATIENT
  Sex: Female

DRUGS (17)
  1. RANITIDINE [Concomitant]
     Active Substance: RANITIDINE\RANITIDINE HYDROCHLORIDE
  2. CYCLOBENZAPRINE [Concomitant]
     Active Substance: CYCLOBENZAPRINE
  3. GLIPIZIDE. [Concomitant]
     Active Substance: GLIPIZIDE
  4. SERTRALINE [Concomitant]
     Active Substance: SERTRALINE HYDROCHLORIDE
  5. ARIPIPRAZOLE [Suspect]
     Active Substance: ARIPIPRAZOLE
     Dosage: LAST DATE STUDY DRUG TAKEN: 11AUG2014
     Dates: start: 20140725
  6. NPH INSULIN [Concomitant]
     Active Substance: INSULIN BEEF
  7. NOVOLOG [Concomitant]
     Active Substance: INSULIN ASPART
  8. OXYBUTYNIN [Concomitant]
     Active Substance: OXYBUTYNIN
  9. ATORVASTATIN [Concomitant]
     Active Substance: ATORVASTATIN
  10. METFORMIN [Concomitant]
     Active Substance: METFORMIN HYDROCHLORIDE
  11. ASA [Concomitant]
     Active Substance: ASPIRIN
  12. LISINOPRIL. [Concomitant]
     Active Substance: LISINOPRIL
  13. ATENOLOL. [Concomitant]
     Active Substance: ATENOLOL
  14. AMITRIPTYLINE [Concomitant]
     Active Substance: AMITRIPTYLINE
  15. HYDROCODONE [Concomitant]
     Active Substance: HYDROCODONE
  16. LEVOTHYROXINE [Concomitant]
     Active Substance: LEVOTHYROXINE
  17. HYDROXYZINE [Concomitant]
     Active Substance: HYDROXYZINE\HYDROXYZINE HYDROCHLORIDE

REACTIONS (1)
  - Urinary bladder rupture [Recovering/Resolving]

NARRATIVE: CASE EVENT DATE: 20140804
